FAERS Safety Report 6366309-X (Version None)
Quarter: 2009Q3

REPORT INFORMATION
  Report Type: 
  Country: None (occurrence: None)
  Receive Date: 20090921
  Receipt Date: 20090821
  Transmission Date: 20100115
  Serious: No
  Sender: FDA-Public Use
  Company Number: US-BAYER-200930823NA

PATIENT
  Sex: Female

DRUGS (1)
  1. CIPRO [Suspect]
     Indication: DRUG USE FOR UNKNOWN INDICATION
     Dates: start: 20090101

REACTIONS (7)
  - AGITATION [None]
  - ANXIETY [None]
  - ARTHRALGIA [None]
  - INFLAMMATION [None]
  - NIGHTMARE [None]
  - PAIN [None]
  - TENDONITIS [None]
